FAERS Safety Report 6776796-0 (Version None)
Quarter: 2010Q2

REPORT INFORMATION
  Report Type: 
  Country: None (occurrence: None)
  Receive Date: 20100617
  Receipt Date: 20100617
  Transmission Date: 20101027
  Serious: Yes (Disabling)
  Sender: FDA-Public Use
  Company Number: None

PATIENT
  Age: 47 Year
  Sex: Female
  Weight: 74.3 kg

DRUGS (12)
  1. METHOTREXATE [Suspect]
  2. HEPARIN [Concomitant]
  3. LEVAQUIN [Concomitant]
  4. FRAGMIN [Concomitant]
  5. PROTONIX [Concomitant]
  6. SOLU-CORTEF [Concomitant]
  7. LEVOPHED [Concomitant]
  8. VANCOMYCIN HCL [Concomitant]
  9. PLAVIX [Concomitant]
  10. MORPHINE [Concomitant]
  11. OXYCODONE HCL [Concomitant]
  12. ROXICODONE [Concomitant]

REACTIONS (3)
  - PULMONARY TOXICITY [None]
  - RENAL FAILURE [None]
  - SHOCK [None]
